FAERS Safety Report 8572816-1 (Version None)
Quarter: 2012Q3

REPORT INFORMATION
  Report Type: 
  Country: None (occurrence: None)
  Receive Date: 20120806
  Receipt Date: 20120522
  Transmission Date: 20120928
  Serious: No
  Sender: FDA-Public Use
  Company Number: US-009507513-2012SP020092

PATIENT

DRUGS (8)
  1. ASPIRIN [Concomitant]
     Indication: PRODUCT USED FOR UNKNOWN INDICATION
     Dosage: 325 MG, UNKNOWN
  2. PLAVIX [Concomitant]
     Indication: CARDIAC DISORDER
     Dosage: 75 MG, UNKNOWN
  3. LIPITOR [Concomitant]
     Indication: CARDIAC DISORDER
     Dosage: 40 MG, UNKNOWN
  4. AMLODIPINE [Concomitant]
     Indication: CARDIAC DISORDER
     Dosage: 10 MG, UNKNOWN
  5. MIRALAX [Suspect]
     Indication: CONSTIPATION
     Dosage: 17 G, QD
     Route: 048
     Dates: start: 20111101
  6. METFORMIN HYDROCHLORIDE [Concomitant]
     Indication: CARDIAC DISORDER
     Dosage: 500 MG, UNKNOWN
  7. METOPROLOL TARTRATE [Suspect]
     Indication: PRODUCT USED FOR UNKNOWN INDICATION
  8. LISINOPRIL [Suspect]
     Indication: PRODUCT USED FOR UNKNOWN INDICATION

REACTIONS (1)
  - BLOOD POTASSIUM INCREASED [None]
